FAERS Safety Report 10034120 (Version 1)
Quarter: 2014Q1

REPORT INFORMATION
  Report Type: Spontaneous
  Country: US (occurrence: None)
  Receive Date: 20140321
  Receipt Date: 20140321
  Transmission Date: 20141002
  Serious: Yes (Death)
  Sender: FDA-Public Use
  Company Number: 2014P1002225

PATIENT
  Age: 50 Year
  Sex: Female

DRUGS (3)
  1. BUPROPION [Suspect]
     Route: 048
  2. METOPROLOL [Suspect]
     Route: 048
  3. FENOFIBRATE [Concomitant]

REACTIONS (10)
  - Suicide attempt [None]
  - Somnolence [None]
  - Convulsion [None]
  - Bradycardia [None]
  - Hypotension [None]
  - No therapeutic response [None]
  - Multi-organ failure [None]
  - Cardiac arrest [None]
  - Incorrect dose administered [None]
  - Exposure via ingestion [None]
